FAERS Safety Report 21033082 (Version 2)
Quarter: 2023Q1

REPORT INFORMATION
  Report Type: Spontaneous
  Country: US (occurrence: None)
  Receive Date: 20220701
  Receipt Date: 20230117
  Transmission Date: 20230417
  Serious: Yes (Other)
  Sender: FDA-Public Use
  Company Number: 2022A233264

PATIENT
  Age: 605 Month
  Sex: Female

DRUGS (2)
  1. BRILINTA [Suspect]
     Active Substance: TICAGRELOR
     Indication: Myocardial infarction
     Route: 048
     Dates: start: 201701
  2. BRILINTA [Suspect]
     Active Substance: TICAGRELOR
     Indication: Stent placement
     Route: 048
     Dates: start: 201701

REACTIONS (9)
  - Myocardial infarction [Recovered/Resolved]
  - Foot fracture [Not Recovered/Not Resolved]
  - Anaphylactic shock [Recovered/Resolved]
  - Platelet disorder [Not Recovered/Not Resolved]
  - Chronic obstructive pulmonary disease [Not Recovered/Not Resolved]
  - Dyspnoea [Recovered/Resolved]
  - Contusion [Unknown]
  - Haemorrhage [Unknown]
  - Product coating issue [Unknown]

NARRATIVE: CASE EVENT DATE: 20170101
